FAERS Safety Report 14690525 (Version 3)
Quarter: 2018Q2

REPORT INFORMATION
  Report Type: Spontaneous
  Country: CA (occurrence: CA)
  Receive Date: 20180328
  Receipt Date: 20180629
  Transmission Date: 20180711
  Serious: Yes (Hospitalization, Other)
  Sender: FDA-Public Use
  Company Number: CA-PFIZER INC-2018036459

PATIENT
  Age: 46 Year
  Sex: Female

DRUGS (8)
  1. XELJANZ [Suspect]
     Active Substance: TOFACITINIB CITRATE
     Dosage: UNK
     Route: 048
     Dates: start: 2018, end: 201806
  2. XELJANZ [Suspect]
     Active Substance: TOFACITINIB CITRATE
     Dosage: 5 MG, 1X/DAY
     Route: 048
     Dates: start: 20180221, end: 20180322
  3. BACLOFEN. [Concomitant]
     Active Substance: BACLOFEN
     Dosage: 2X/DAY (5MG AM 10MG PM)
  4. PREDNISONE. [Concomitant]
     Active Substance: PREDNISONE
     Dosage: 10 MG, DAILY
  5. XELJANZ [Suspect]
     Active Substance: TOFACITINIB CITRATE
     Indication: RHEUMATOID ARTHRITIS
     Dosage: 5 MG, 2X/DAY (EVERY MONDAY, WEDNESDAY, FRIDAY MORNINGS, ON VARIABLE DAYS FOR 2 WEEKS)
     Route: 048
     Dates: start: 20180131
  6. IMODIUM [Concomitant]
     Active Substance: LOPERAMIDE HYDROCHLORIDE
     Indication: DIARRHOEA
     Dosage: UNK
  7. XELJANZ [Suspect]
     Active Substance: TOFACITINIB CITRATE
     Dosage: 5 MG ONCE A DAY ON VARIABLE DAYS
     Route: 048
     Dates: start: 20180212, end: 20180215
  8. NABILONE [Concomitant]
     Active Substance: NABILONE
     Dosage: UNK

REACTIONS (16)
  - Bradycardia [Not Recovered/Not Resolved]
  - Off label use [Unknown]
  - Diarrhoea [Not Recovered/Not Resolved]
  - Nausea [Unknown]
  - Abdominal discomfort [Not Recovered/Not Resolved]
  - Disease recurrence [Not Recovered/Not Resolved]
  - Nasopharyngitis [Unknown]
  - Uterine haemorrhage [Unknown]
  - Dysgeusia [Not Recovered/Not Resolved]
  - Headache [Unknown]
  - Drug ineffective [Recovering/Resolving]
  - Vomiting [Unknown]
  - Weight decreased [Not Recovered/Not Resolved]
  - Alopecia [Not Recovered/Not Resolved]
  - Insomnia [Not Recovered/Not Resolved]
  - Chest pain [Unknown]

NARRATIVE: CASE EVENT DATE: 20180608
